FAERS Safety Report 7564398-8 (Version None)
Quarter: 2011Q2

REPORT INFORMATION
  Report Type: 
  Country: None (occurrence: None)
  Receive Date: 20110622
  Receipt Date: 20110610
  Transmission Date: 20111010
  Serious: Yes (Hospitalization)
  Sender: FDA-Public Use
  Company Number: PHHY2011JP51945

PATIENT
  Age: 42 Year
  Sex: Male

DRUGS (2)
  1. NATEGLINIDE [Suspect]
     Dosage: 270 MG, DAILY
     Route: 048
     Dates: start: 20110101, end: 20110501
  2. EQUA [Suspect]
     Indication: TYPE 2 DIABETES MELLITUS
     Dosage: 100 MG, DAILY IN 2 DIVIDED DOSE
     Route: 048
     Dates: start: 20110101, end: 20110501

REACTIONS (1)
  - DRUG ERUPTION [None]
